FAERS Safety Report 9046534 (Version 1)
Quarter: 2013Q1

REPORT INFORMATION
  Report Type: Spontaneous
  Country: US (occurrence: None)
  Receive Date: 20130128
  Receipt Date: 20130128
  Transmission Date: 20140127
  Serious: Yes (Other)
  Sender: FDA-Public Use
  Company Number: None

PATIENT
  Age: 29 Year
  Sex: Female
  Weight: 113.4 kg

DRUGS (1)
  1. CIPROFLOXACIN HCL [Suspect]
     Indication: URINARY TRACT INFECTION
     Route: 048
     Dates: start: 20130117, end: 20130119

REACTIONS (3)
  - Neuralgia [None]
  - Myalgia [None]
  - Migraine [None]
